FAERS Safety Report 14416757 (Version 1)
Quarter: 2018Q1

REPORT INFORMATION
  Report Type: Spontaneous
  Country: US (occurrence: US)
  Receive Date: 20180119
  Receipt Date: 20180119
  Transmission Date: 20180509
  Serious: Yes (Hospitalization)
  Sender: FDA-Public Use
  Company Number: None

PATIENT
  Age: 72 Year
  Sex: Male

DRUGS (1)
  1. CEFTRIAXONE. [Suspect]
     Active Substance: CEFTRIAXONE
     Indication: BRONCHOSCOPY
     Route: 042
     Dates: start: 20171013, end: 20171013

REACTIONS (4)
  - Anaphylactic reaction [None]
  - Nausea [None]
  - Bronchospasm [None]
  - Vomiting [None]

NARRATIVE: CASE EVENT DATE: 20171013
